FAERS Safety Report 5586334-6 (Version None)
Quarter: 2008Q1

REPORT INFORMATION
  Report Type: 
  Country: None (occurrence: None)
  Receive Date: 20080107
  Receipt Date: 20080107
  Transmission Date: 20080703
  Serious: No
  Sender: FDA-Public Use
  Company Number: None

PATIENT
  Age: 46 Year
  Sex: Female
  Weight: 72.5755 kg

DRUGS (1)
  1. DILANTIN [Suspect]
     Indication: CONVULSION
     Dosage: 200MG. IN AM AND 100MG IN PM EVERYDAY PO
     Route: 048
     Dates: start: 20071227, end: 20080105

REACTIONS (9)
  - BURNING SENSATION [None]
  - CHEST PAIN [None]
  - GASTROINTESTINAL DISORDER [None]
  - HEADACHE [None]
  - MALAISE [None]
  - PHARMACEUTICAL PRODUCT COMPLAINT [None]
  - RASH [None]
  - SKIN BURNING SENSATION [None]
  - URTICARIA [None]
